FAERS Safety Report 8222184-X (Version None)
Quarter: 2012Q1

REPORT INFORMATION
  Report Type: 
  Country: None (occurrence: None)
  Receive Date: 20120316
  Receipt Date: 20120307
  Transmission Date: 20120608
  Serious: Yes (Death, Other)
  Sender: FDA-Public Use
  Company Number: 2012SP012844

PATIENT
  Age: 56 Year
  Sex: Female

DRUGS (4)
  1. BOCEPREVIR (SCH-503034) [Suspect]
     Indication: HEPATITIS C
     Dosage: 200 MG; Q12H
     Dates: start: 20110705, end: 20120117
  2. ALDACTONE [Suspect]
     Indication: OEDEMA
     Dates: start: 20110705, end: 20120117
  3. RIBAVIRIN [Suspect]
     Indication: HEPATITIS C
     Dosage: 1200 MG;
     Dates: start: 20110705, end: 20120117
  4. PEGASYS [Suspect]
     Indication: HEPATITIS C
     Dosage: 180 MCG; QW
     Dates: start: 20110705, end: 20120117

REACTIONS (6)
  - ACUTE HEPATIC FAILURE [None]
  - ACUTE RESPIRATORY DISTRESS SYNDROME [None]
  - HYPOGLYCAEMIA [None]
  - SOMNOLENCE [None]
  - RENAL FAILURE ACUTE [None]
  - HYPOTENSION [None]
